FAERS Safety Report 16911691 (Version 1)
Quarter: 2019Q4

REPORT INFORMATION
  Report Type: Report from Study
  Country: IT (occurrence: IT)
  Receive Date: 20191013
  Receipt Date: 20191013
  Transmission Date: 20200122
  Serious: Yes (Other)
  Sender: FDA-Public Use
  Company Number: IT-AUROBINDO-AUR-APL-2019-064094

PATIENT
  Age: 78 Year
  Sex: Male

DRUGS (3)
  1. FLUOROURACIL. [Concomitant]
     Active Substance: FLUOROURACIL
     Indication: GASTROINTESTINAL NEOPLASM
     Dosage: UNK,AS A PART OF 6 CYCLES OF FOLFOX REGIMEN (ADJUVANT THERAPY)
     Route: 065
  2. FOLINIC ACID [Concomitant]
     Active Substance: LEUCOVORIN
     Indication: GASTROINTESTINAL NEOPLASM
     Dosage: UNK,AS A PART OF 6 CYCLES OF FOLFOX REGIMEN (ADJUVANT THERAPY)
     Route: 065
  3. OXALIPLATIN. [Suspect]
     Active Substance: OXALIPLATIN
     Indication: GASTROINTESTINAL NEOPLASM
     Dosage: UNK,AS A PART OF 6 CYCLES OF FOLFOX REGIMEN (ADJUVANT THERAPY)
     Route: 065

REACTIONS (8)
  - Portal hypertension [Unknown]
  - Splenic vein thrombosis [Unknown]
  - Non-cirrhotic portal hypertension [Unknown]
  - Portal shunt [Unknown]
  - Periportal sinus dilatation [Unknown]
  - Portal vein thrombosis [Unknown]
  - Venous injury [Unknown]
  - Oesophageal varices haemorrhage [Recovering/Resolving]
